FAERS Safety Report 21767061 (Version 1)
Quarter: 2022Q4

REPORT INFORMATION
  Report Type: Report from Study
  Country: GB (occurrence: GB)
  Receive Date: 20221222
  Receipt Date: 20221222
  Transmission Date: 20230113
  Serious: Yes (Hospitalization)
  Sender: FDA-Public Use
  Company Number: GB-TEVA-2022-GB-2069105

PATIENT
  Age: 52 Year
  Sex: Female

DRUGS (1)
  1. OCTREOTIDE [Suspect]
     Active Substance: OCTREOTIDE
     Indication: Product used for unknown indication
     Dosage: DATE OF LAST ADMINISTRATION 29-NOV-2022
     Route: 065

REACTIONS (7)
  - Hospitalisation [Unknown]
  - Cold sweat [Unknown]
  - Eyelid injury [Unknown]
  - Somnolence [Unknown]
  - Radial pulse decreased [Unknown]
  - Eye haematoma [Unknown]
  - Product dose omission issue [Unknown]

NARRATIVE: CASE EVENT DATE: 20220101
